FAERS Safety Report 15235205 (Version 1)
Quarter: 2018Q3

REPORT INFORMATION
  Report Type: Spontaneous
  Country: MD (occurrence: MD)
  Receive Date: 20180803
  Receipt Date: 20180803
  Transmission Date: 20181010
  Serious: Yes (Death, Hospitalization, Other)
  Sender: FDA-Public Use
  Company Number: MD-SUN PHARMACEUTICAL INDUSTRIES LTD-2018RR-180329

PATIENT
  Age: 5 Year
  Sex: Female

DRUGS (1)
  1. PARACETAMOL [Suspect]
     Active Substance: ACETAMINOPHEN
     Indication: PYREXIA
     Dosage: UNK
     Route: 065

REACTIONS (7)
  - Hepatic failure [Fatal]
  - Toxicity to various agents [Fatal]
  - Toxic encephalopathy [Fatal]
  - Renal failure [Fatal]
  - Coma [Fatal]
  - Cardiovascular insufficiency [Fatal]
  - Disseminated intravascular coagulation [Fatal]

NARRATIVE: CASE EVENT DATE: 20180718
